FAERS Safety Report 10271581 (Version 2)
Quarter: 2014Q3

REPORT INFORMATION
  Report Type: Report from Study
  Country: DE (occurrence: DE)
  Receive Date: 20140701
  Receipt Date: 20140701
  Transmission Date: 20150326
  Serious: Yes (Hospitalization, Other)
  Sender: FDA-Public Use
  Company Number: DE-ABBVIE-12P-062-0912202-00

PATIENT
  Age: 51 Year
  Sex: Female

DRUGS (3)
  1. MTX [Concomitant]
     Active Substance: METHOTREXATE SODIUM
     Indication: PRODUCT USED FOR UNKNOWN INDICATION
  2. HUMIRA [Suspect]
     Active Substance: ADALIMUMAB
     Dates: start: 201205, end: 20140603
  3. HUMIRA [Suspect]
     Active Substance: ADALIMUMAB
     Indication: RHEUMATOID ARTHRITIS
     Route: 058
     Dates: start: 20100120, end: 20120118

REACTIONS (6)
  - Chondrectomy [Not Recovered/Not Resolved]
  - Knee operation [Not Recovered/Not Resolved]
  - Synovial cyst [Not Recovered/Not Resolved]
  - Meniscus removal [Not Recovered/Not Resolved]
  - Cyst [Not Recovered/Not Resolved]
  - Pain [Not Recovered/Not Resolved]

NARRATIVE: CASE EVENT DATE: 20120302
